FAERS Safety Report 13539285 (Version 1)
Quarter: 2017Q2

REPORT INFORMATION
  Report Type: Spontaneous
  Country: US (occurrence: US)
  Receive Date: 20170512
  Receipt Date: 20170512
  Transmission Date: 20170830
  Serious: No
  Sender: FDA-Public Use
  Company Number: US-PFIZER INC-2017191991

PATIENT
  Age: 61 Year
  Sex: Female
  Weight: 88.44 kg

DRUGS (17)
  1. VOLTAREN [Concomitant]
     Active Substance: DICLOFENAC SODIUM
     Dosage: 75 MG, AS NEEDED [TAKE ONE TABLET TWICE DAILY AS NEEDED WITH FOOD]
  2. AZULFIDINE [Concomitant]
     Active Substance: SULFASALAZINE
     Dosage: 1000 MG, 2X/DAY
     Route: 048
  3. KENALOG [Concomitant]
     Active Substance: TRIAMCINOLONE ACETONIDE
     Indication: STOMATITIS
     Dosage: UNK, AS NEEDED [APPLY THIN LAYER TO AFFECTED MOUTH SORES UP TO 3 TIMES A DAY AS NEEDED]
     Route: 061
  4. XELJANZ XR [Concomitant]
     Active Substance: TOFACITINIB CITRATE
     Dosage: 11 MG, DAILY
     Route: 048
     Dates: start: 20170302
  5. SULFASALAZINE. [Suspect]
     Active Substance: SULFASALAZINE
     Dosage: UNK
  6. LIDOCAINE HCL [Concomitant]
     Active Substance: LIDOCAINE HYDROCHLORIDE
     Dosage: 2 ML, UNK
  7. MELOXICAM. [Concomitant]
     Active Substance: MELOXICAM
     Dosage: UNK
  8. ESTRACE [Concomitant]
     Active Substance: ESTRADIOL
     Dosage: 0.1 MG/G, AS NEEDED [APPLY THIN LAYER ONCE A DAY AS NEEDED]
     Route: 067
  9. LIDOCAINE. [Concomitant]
     Active Substance: LIDOCAINE
     Dosage: 2 ML, AS NEEDED [2 MLS ONCE PRN]
     Dates: start: 20170302, end: 20170302
  10. ORENCIA [Suspect]
     Active Substance: ABATACEPT
     Dosage: UNK UNK, 2X/WEEK
  11. PLAQUENIL /00072602/ [Concomitant]
     Active Substance: HYDROXYCHLOROQUINE DIPHOSPHATE
     Dosage: 400 MG, DAILY
     Route: 048
     Dates: start: 201309
  12. DEPO-MEDROL [Concomitant]
     Active Substance: METHYLPREDNISOLONE ACETATE
     Dosage: 40 MG, AS NEEDED [INJECT 40 MG INTO THE ARTICULAR SPACE ONCE PRN]
     Route: 014
     Dates: start: 20170302, end: 20170302
  13. DEPO-MEDROL [Concomitant]
     Active Substance: METHYLPREDNISOLONE ACETATE
     Dosage: 10 MG, UNK
  14. CELEBREX [Suspect]
     Active Substance: CELECOXIB
     Indication: RHEUMATOID ARTHRITIS
     Dosage: UNK
     Dates: start: 201310
  15. ORENCIA [Suspect]
     Active Substance: ABATACEPT
     Indication: RHEUMATOID ARTHRITIS
     Dosage: 125 MG/ML, WEEKLY
     Dates: start: 201404
  16. ULTRAM [Concomitant]
     Active Substance: TRAMADOL HYDROCHLORIDE
     Indication: PAIN
     Dosage: 50 MG, AS NEEDED [2 (TWO) TIMES DAILY AS NEEDED FOR PAIN]
     Route: 048
  17. ROBAXIN [Concomitant]
     Active Substance: METHOCARBAMOL
     Indication: NECK PAIN
     Dosage: 750 MG, AS NEEDED [TAKE ONE BY MOUTH EVERY DAY AS NEEDED]
     Route: 048
     Dates: start: 20170302

REACTIONS (1)
  - Drug ineffective [Unknown]
